FAERS Safety Report 12979555 (Version 1)
Quarter: 2016Q4

REPORT INFORMATION
  Report Type: Spontaneous
  Country: IT (occurrence: IT)
  Receive Date: 20161128
  Receipt Date: 20161128
  Transmission Date: 20170207
  Serious: Yes (Hospitalization)
  Sender: FDA-Public Use
  Company Number: IT-PFIZER INC-2016546441

PATIENT
  Age: 51 Year
  Sex: Female

DRUGS (4)
  1. OLANZAPINE. [Suspect]
     Active Substance: OLANZAPINE
     Dosage: UNK
     Route: 048
     Dates: start: 20161003, end: 20161003
  2. GABAPENTIN. [Suspect]
     Active Substance: GABAPENTIN
     Dosage: UNK
     Route: 048
     Dates: start: 20161003, end: 20161003
  3. EUTIROX [Concomitant]
     Active Substance: LEVOTHYROXINE SODIUM
     Dosage: UNK
     Route: 048
  4. ALPRAZOLAM. [Suspect]
     Active Substance: ALPRAZOLAM
     Dosage: UNK
     Route: 048
     Dates: start: 20161003, end: 20161003

REACTIONS (7)
  - Head injury [Unknown]
  - Coma [Unknown]
  - Suicide attempt [Unknown]
  - Toxicity to various agents [Unknown]
  - Drug abuse [Unknown]
  - Intentional self-injury [Unknown]
  - Excoriation [Unknown]

NARRATIVE: CASE EVENT DATE: 20161003
